FAERS Safety Report 19511286 (Version 1)
Quarter: 2021Q3

REPORT INFORMATION
  Report Type: Other
  Country: DE (occurrence: DE)
  Receive Date: 20210709
  Receipt Date: 20210709
  Transmission Date: 20211014
  Serious: Yes (Hospitalization)
  Sender: FDA-Public Use
  Company Number: DE-LUPIN PHARMACEUTICALS INC.-2021-11123

PATIENT
  Age: 85 Year
  Sex: Male
  Weight: 60 kg

DRUGS (12)
  1. METILDIGOXIN [Concomitant]
     Active Substance: METILDIGOXIN
     Indication: PRODUCT USED FOR UNKNOWN INDICATION
     Dosage: 0.1 MILLIGRAM,1?0?0?0
     Route: 048
  2. SACCHAROMYCES BOULARDII [Concomitant]
     Active Substance: SACCHAROMYCES CEREVISIAE
     Indication: PRODUCT USED FOR UNKNOWN INDICATION
     Dosage: 375 MILLIGRAM, QD, 0?1?0?0,
     Route: 048
  3. RAMIPRIL. [Suspect]
     Active Substance: RAMIPRIL
     Indication: PRODUCT USED FOR UNKNOWN INDICATION
     Dosage: 5 MILLIGRAM, BID, 1?0?1?0 (TABLET)
     Route: 048
  4. METAMIZOL [Concomitant]
     Active Substance: METAMIZOLE SODIUM
     Indication: PRODUCT USED FOR UNKNOWN INDICATION
     Dosage: 500 MILLIGRAM, QID,1?1?1?1?1
     Route: 048
  5. ATORVASTATIN [Concomitant]
     Active Substance: ATORVASTATIN
     Indication: PRODUCT USED FOR UNKNOWN INDICATION
     Dosage: 40 MILLIGRAM, QD, 0?0?1?0
     Route: 048
  6. LEVETIRACETAM. [Concomitant]
     Active Substance: LEVETIRACETAM
     Indication: PRODUCT USED FOR UNKNOWN INDICATION
     Dosage: 1000 MILLIGRAM, BID, 1?0?1?0,
     Route: 048
  7. SITAGLIPTIN [Suspect]
     Active Substance: SITAGLIPTIN
     Indication: PRODUCT USED FOR UNKNOWN INDICATION
     Dosage: 100 MILLIGRAM, QD, 1?0?0?0
     Route: 048
  8. TORASEMID [Suspect]
     Active Substance: TORSEMIDE
     Indication: PRODUCT USED FOR UNKNOWN INDICATION
     Dosage: 5 MILLIGRAM, QD, 1?0?0?0,
     Route: 048
  9. DABIGATRAN [Suspect]
     Active Substance: DABIGATRAN
     Indication: PRODUCT USED FOR UNKNOWN INDICATION
     Dosage: 110 MILLIGRAM, BID, 1?0?1?0,
     Route: 048
  10. CYANOCOBALAMIN. [Concomitant]
     Active Substance: CYANOCOBALAMIN
     Indication: PRODUCT USED FOR UNKNOWN INDICATION
     Dosage: 1 MILLIGRAM, QD, 1?0?0?0
     Route: 048
  11. QUETIAPINE TABLETS [Suspect]
     Active Substance: QUETIAPINE
     Indication: PRODUCT USED FOR UNKNOWN INDICATION
     Dosage: 50 MILLIGRAM, QD, , 0?0?1?0
     Route: 048
  12. METOPROLOL. [Suspect]
     Active Substance: METOPROLOL
     Indication: PRODUCT USED FOR UNKNOWN INDICATION
     Dosage: 47.5 MILLIGRAM, BID, 1?0?1?0
     Route: 048

REACTIONS (8)
  - Fracture [Unknown]
  - Pollakiuria [Unknown]
  - Pyrexia [Unknown]
  - Balance disorder [Unknown]
  - Memory impairment [Unknown]
  - Fall [Unknown]
  - Micturition disorder [Unknown]
  - General physical health deterioration [Unknown]
